FAERS Safety Report 4741148-1 (Version None)
Quarter: 2005Q3

REPORT INFORMATION
  Report Type: 
  Country: None (occurrence: None)
  Receive Date: 20050810
  Receipt Date: 20041217
  Transmission Date: 20060218
  Serious: No
  Sender: FDA-Public Use
  Company Number: US-GLAXOSMITHKLINE-A0537780A

PATIENT
  Age: 55 Year
  Sex: Female

DRUGS (5)
  1. PAXIL [Suspect]
     Indication: PANIC DISORDER
     Dosage: 40MG PER DAY
     Route: 048
  2. WELLBUTRIN [Concomitant]
  3. BUPROPION [Concomitant]
  4. METFORMIN [Concomitant]
  5. VASOTEC RPD [Concomitant]

REACTIONS (3)
  - BALANCE DISORDER [None]
  - INJURY [None]
  - RASH [None]
